FAERS Safety Report 8075349-4 (Version None)
Quarter: 2012Q1

REPORT INFORMATION
  Report Type: 
  Country: None (occurrence: None)
  Receive Date: 20120127
  Receipt Date: 20120119
  Transmission Date: 20120608
  Serious: Yes (Hospitalization)
  Sender: FDA-Public Use
  Company Number: US-BAYER-2011-042247

PATIENT
  Age: 16 Year
  Sex: Female
  Weight: 96.599 kg

DRUGS (12)
  1. YASMIN [Suspect]
     Indication: ACNE
     Dosage: UNK
     Dates: start: 20040823, end: 20041205
  2. IBUPROFEN [Concomitant]
     Dosage: UNK
     Dates: start: 20030101
  3. PROMETHAZINE - CODEINE [CODEINE PHOSPHATE,PROMETHAZINE HYDROCHLORI [Concomitant]
     Dosage: UNK
     Dates: start: 20041202
  4. BENZOYL PEROXIDE [Concomitant]
     Indication: ACNE
     Dosage: 10 %, UNK
     Dates: start: 20030101, end: 20040101
  5. EFFEXOR XR [Concomitant]
     Indication: DEPRESSION
     Dosage: 75 MG, UNK
     Dates: start: 20041001, end: 20050901
  6. DIAZEPAM [Concomitant]
     Indication: ANXIETY
     Dosage: 5 MG, UNK
     Dates: start: 20041120
  7. GUAIFEN/P-EPHED TABLET [Concomitant]
     Dosage: UNK
     Dates: start: 20041122
  8. BIAXIN [Concomitant]
     Indication: COUGH
     Dosage: 500 MG, UNK
  9. NEURONTIN [Concomitant]
     Indication: NEURALGIA
     Dosage: 300 MG, UNK
     Dates: start: 20041001, end: 20050901
  10. GABAPENTIN [Concomitant]
     Indication: NEURALGIA
     Dosage: 300 MG, UNK
     Dates: start: 20041122, end: 20050101
  11. MULTIVITAMINS, COMBINATIONS [Concomitant]
  12. PRILOSEC [Concomitant]

REACTIONS (7)
  - PULMONARY EMBOLISM [None]
  - INJURY [None]
  - HAEMOPTYSIS [None]
  - EMOTIONAL DISTRESS [None]
  - CHEST PAIN [None]
  - PAIN [None]
  - ANXIETY [None]
